FAERS Safety Report 6856395-2 (Version None)
Quarter: 2010Q3

REPORT INFORMATION
  Report Type: 
  Country: None (occurrence: None)
  Receive Date: 20100719
  Receipt Date: 20100707
  Transmission Date: 20110219
  Serious: Yes (Other)
  Sender: FDA-Public Use
  Company Number: US-ROCHE-680235

PATIENT
  Sex: Female
  Weight: 72.7 kg

DRUGS (8)
  1. PEGASYS [Suspect]
     Indication: HEPATITIS C
     Dosage: FORM: PRE-FILLED SYRINGE
     Route: 058
     Dates: start: 20090625, end: 20091202
  2. VALIUM [Suspect]
     Indication: PAIN
     Route: 065
  3. DIAZEPAM [Suspect]
     Indication: TREMOR
     Route: 065
     Dates: start: 20090601
  4. RIBASPHERE [Suspect]
     Indication: HEPATITIS C
     Dosage: DIVIDED DOSES
     Route: 048
     Dates: start: 20090625, end: 20091202
  5. LEXAPRO [Concomitant]
  6. VALTREX [Concomitant]
  7. ZOLPIDEM [Concomitant]
  8. LAMICTAL [Concomitant]

REACTIONS (14)
  - AMNESIA [None]
  - ANXIETY [None]
  - DEMENTIA ALZHEIMER'S TYPE [None]
  - DEPRESSION [None]
  - FALL [None]
  - FURUNCLE [None]
  - HERPES ZOSTER [None]
  - MENOPAUSAL SYMPTOMS [None]
  - PAIN [None]
  - RASH PUSTULAR [None]
  - SUICIDAL IDEATION [None]
  - TREATMENT FAILURE [None]
  - TREMOR [None]
  - WEIGHT DECREASED [None]
